FAERS Safety Report 11413660 (Version 1)
Quarter: 2015Q3

REPORT INFORMATION
  Report Type: Spontaneous
  Country: US (occurrence: US)
  Receive Date: 20150824
  Receipt Date: 20150824
  Transmission Date: 20151125
  Serious: No
  Sender: FDA-Public Use
  Company Number: US-ELI_LILLY_AND_COMPANY-US201508000196

PATIENT
  Age: 43 Year
  Sex: Male

DRUGS (2)
  1. PROZAC [Suspect]
     Active Substance: FLUOXETINE HYDROCHLORIDE
     Indication: OBSESSIVE-COMPULSIVE DISORDER
     Dosage: 10 MG, EACH MORNING
     Route: 065
     Dates: start: 1995
  2. PROZAC [Suspect]
     Active Substance: FLUOXETINE HYDROCHLORIDE
     Dosage: 10 MG, EACH EVENING
     Route: 065
     Dates: start: 1995

REACTIONS (9)
  - Palpitations [Unknown]
  - Scratch [Unknown]
  - Drug withdrawal syndrome [Unknown]
  - Hypersomnia [Unknown]
  - Obsessive-compulsive disorder [Unknown]
  - Agitation [Unknown]
  - Bruxism [Unknown]
  - Paraesthesia [Unknown]
  - Irritability [Unknown]
